FAERS Safety Report 19411860 (Version 1)
Quarter: 2021Q2

REPORT INFORMATION
  Report Type: Spontaneous
  Country: FR (occurrence: FR)
  Receive Date: 20210614
  Receipt Date: 20210614
  Transmission Date: 20210717
  Serious: Yes (Other)
  Sender: FDA-Public Use
  Company Number: FR-GLAXOSMITHKLINE-FR2021123972

PATIENT
  Sex: Male

DRUGS (2)
  1. BLENREP [Suspect]
     Active Substance: BELANTAMAB MAFODOTIN-BLMF
     Indication: PLASMA CELL MYELOMA
     Dosage: UNK
     Dates: end: 202103
  2. AMYLASE [Suspect]
     Active Substance: AMYLASE
     Indication: PLASMA CELL MYELOMA
     Dosage: UNK

REACTIONS (3)
  - Cataract [Unknown]
  - Ocular toxicity [Unknown]
  - Product administration interrupted [Unknown]

NARRATIVE: CASE EVENT DATE: 202103
